FAERS Safety Report 9497037 (Version 1)
Quarter: 2013Q3

REPORT INFORMATION
  Report Type: Spontaneous
  Country: US (occurrence: None)
  Receive Date: 20130903
  Receipt Date: 20130903
  Transmission Date: 20140515
  Serious: Yes (Hospitalization, Other)
  Sender: FDA-Public Use
  Company Number: None

PATIENT
  Age: 28 Year
  Sex: Female
  Weight: 85.28 kg

DRUGS (1)
  1. MIRENA [Suspect]

REACTIONS (6)
  - Abdominal pain [None]
  - Local swelling [None]
  - Diarrhoea [None]
  - Gastrointestinal oedema [None]
  - Ovarian cyst [None]
  - Abdominal pain [None]
